FAERS Safety Report 5381042-9 (Version None)
Quarter: 2007Q3

REPORT INFORMATION
  Report Type: 
  Country: None (occurrence: None)
  Receive Date: 20070706
  Receipt Date: 20070704
  Transmission Date: 20080115
  Serious: Yes (Death, Other)
  Sender: FDA-Public Use
  Company Number: FR-ROXANE LABORATORIES, INC-2007-BP-07629RO

PATIENT
  Age: 49 Year
  Sex: Male

DRUGS (5)
  1. DEXAMETHASONE [Suspect]
     Indication: MENINGITIS PNEUMOCOCCAL
     Dosage: 10 MG Q6H X 4 DAYS
  2. CEFOTAXIME [Concomitant]
     Indication: MENINGITIS PNEUMOCOCCAL
     Route: 042
  3. VANCOMYCIN HCL [Concomitant]
     Indication: MENINGITIS PNEUMOCOCCAL
     Dosage: 40 MG/KG/DAY
     Route: 042
  4. AMOXICILLIN [Concomitant]
     Indication: MENINGITIS PNEUMOCOCCAL
     Route: 042
  5. PHOSPHOMYCIN [Concomitant]
     Indication: MENINGITIS PNEUMOCOCCAL
     Route: 042

REACTIONS (5)
  - ARTHRITIS [None]
  - BRAIN HERNIATION [None]
  - BRAIN OEDEMA [None]
  - CONDITION AGGRAVATED [None]
  - VASCULITIS CEREBRAL [None]
